FAERS Safety Report 9208707 (Version 1)
Quarter: 2013Q2

REPORT INFORMATION
  Report Type: Spontaneous
  Country: DE (occurrence: DE)
  Receive Date: 20130404
  Receipt Date: 20130404
  Transmission Date: 20140414
  Serious: Yes (Other)
  Sender: FDA-Public Use
  Company Number: DE-AMGEN-DEUSP2013023186

PATIENT
  Age: 45 Year
  Sex: Female

DRUGS (4)
  1. ENBREL [Suspect]
     Indication: ANKYLOSING SPONDYLITIS
     Dosage: 25 MG, 2X/WEEK
     Dates: start: 20120816
  2. ENBREL [Suspect]
     Indication: RHEUMATOID ARTHRITIS
  3. NOVALGIN                           /06276704/ [Concomitant]
     Dosage: UNK
  4. CORTISONE [Concomitant]
     Dosage: UNK

REACTIONS (3)
  - Oedema mucosal [Not Recovered/Not Resolved]
  - Local swelling [Not Recovered/Not Resolved]
  - Genital abscess [Not Recovered/Not Resolved]
